FAERS Safety Report 10918134 (Version 2)
Quarter: 2015Q3

REPORT INFORMATION
  Report Type: Spontaneous
  Country: US (occurrence: US)
  Receive Date: 20150316
  Receipt Date: 20150914
  Transmission Date: 20151125
  Serious: No
  Sender: FDA-Public Use
  Company Number: US-ASTELLAS-2014US019704

PATIENT
  Age: 59 Year
  Sex: Male

DRUGS (1)
  1. XTANDI [Suspect]
     Active Substance: ENZALUTAMIDE
     Indication: PROSTATE CANCER
     Route: 048
     Dates: start: 20140904

REACTIONS (6)
  - Fatigue [Unknown]
  - Oedema peripheral [Recovered/Resolved]
  - Dizziness [Unknown]
  - Underdose [Unknown]
  - Asthenia [Unknown]
  - Back pain [Recovered/Resolved]

NARRATIVE: CASE EVENT DATE: 20140904
